FAERS Safety Report 9441800 (Version 2)
Quarter: 2013Q3

REPORT INFORMATION
  Report Type: Spontaneous
  Country: US (occurrence: US)
  Receive Date: 20130806
  Receipt Date: 20130903
  Transmission Date: 20140515
  Serious: No
  Sender: FDA-Public Use
  Company Number: US-PFIZER INC-2013225181

PATIENT
  Age: 57 Year
  Sex: Female

DRUGS (3)
  1. SUTENT [Suspect]
     Indication: RENAL NEOPLASM
     Dosage: 50 MG, CYCLIC (DAILY X14D Q 21 D SCHEDULE)
     Route: 048
     Dates: start: 201001
  2. SUTENT [Suspect]
     Indication: RENAL CANCER
  3. LEVOTHROID [Concomitant]
     Indication: HYPOTHYROIDISM
     Dosage: 1 G, DAILY

REACTIONS (1)
  - Yellow skin [Recovered/Resolved]
